FAERS Safety Report 11512228 (Version 1)
Quarter: 2015Q3

REPORT INFORMATION
  Report Type: Spontaneous
  Country: US (occurrence: US)
  Receive Date: 20150916
  Receipt Date: 20150916
  Transmission Date: 20151125
  Serious: No
  Sender: FDA-Public Use
  Company Number: US-LUPIN PHARMACEUTICALS INC.-E2B_00003039

PATIENT
  Age: 57 Year
  Sex: Male
  Weight: 106.69 kg

DRUGS (1)
  1. CEPHALEXIN CAPSULES USP 500MG [Suspect]
     Active Substance: CEPHALEXIN
     Indication: INFECTION PROPHYLAXIS
     Dates: start: 201412, end: 20141226

REACTIONS (5)
  - Ageusia [Not Recovered/Not Resolved]
  - Tongue discolouration [Recovered/Resolved]
  - Drug dose omission [Unknown]
  - Parosmia [Not Recovered/Not Resolved]
  - Tongue coated [Recovered/Resolved]

NARRATIVE: CASE EVENT DATE: 201412
